FAERS Safety Report 7520000-2 (Version None)
Quarter: 2011Q2

REPORT INFORMATION
  Report Type: 
  Country: None (occurrence: None)
  Receive Date: 20110602
  Receipt Date: 20110518
  Transmission Date: 20111010
  Serious: Yes (Death, Other)
  Sender: FDA-Public Use
  Company Number: PHHY2011NL43322

PATIENT
  Age: 29 Year
  Sex: Female

DRUGS (1)
  1. INTERFERON BETA-1B [Suspect]
     Indication: RELAPSING-REMITTING MULTIPLE SCLEROSIS

REACTIONS (15)
  - MULTIPLE SCLEROSIS RELAPSE [None]
  - MALAISE [None]
  - SUDDEN CARDIAC DEATH [None]
  - DIPLOPIA [None]
  - DRUG EXPOSURE DURING PREGNANCY [None]
  - DIZZINESS [None]
  - TONGUE PARALYSIS [None]
  - DYSPHAGIA [None]
  - BRADYCARDIA [None]
  - NORMAL NEWBORN [None]
  - DYSARTHRIA [None]
  - NAUSEA [None]
  - HYPERHIDROSIS [None]
  - VIITH NERVE PARALYSIS [None]
  - VENTRICULAR FIBRILLATION [None]
